FAERS Safety Report 8121555-X (Version None)
Quarter: 2012Q1

REPORT INFORMATION
  Report Type: 
  Country: None (occurrence: None)
  Receive Date: 20120208
  Receipt Date: 20120130
  Transmission Date: 20120608
  Serious: Yes (Other)
  Sender: FDA-Public Use
  Company Number: DE-SANOFI-AVENTIS-2011SA072299

PATIENT
  Age: 80 Year
  Sex: Female
  Weight: 60 kg

DRUGS (1)
  1. CLOPIDOGREL BISULFATE [Suspect]
     Indication: TRANSIENT ISCHAEMIC ATTACK
     Dosage: FOR 4-5 YEARS
     Route: 048

REACTIONS (4)
  - POST PROCEDURAL HAEMORRHAGE [None]
  - INTESTINAL PERFORATION [None]
  - CONTUSION [None]
  - OFF LABEL USE [None]
